FAERS Safety Report 10143422 (Version 1)
Quarter: 2014Q2

REPORT INFORMATION
  Report Type: Spontaneous
  Country: US (occurrence: US)
  Receive Date: 20140430
  Receipt Date: 20140430
  Transmission Date: 20141212
  Serious: Yes (Other)
  Sender: FDA-Public Use
  Company Number: US-JNJFOC-20140316317

PATIENT
  Sex: Male

DRUGS (4)
  1. INVEGA [Suspect]
     Indication: MOOD SWINGS
     Route: 048
     Dates: start: 2013, end: 2013
  2. INVEGA [Suspect]
     Indication: MOOD SWINGS
     Route: 048
     Dates: start: 2013, end: 2014
  3. INVEGA [Suspect]
     Indication: MOOD SWINGS
     Dosage: CUTTING HALF, 6MG TABLET
     Route: 048
     Dates: start: 2014
  4. INVEGA [Suspect]
     Indication: MOOD SWINGS
     Route: 048
     Dates: start: 2013, end: 2013

REACTIONS (8)
  - Rotator cuff syndrome [Not Recovered/Not Resolved]
  - Therapy change [Recovered/Resolved]
  - Wrong technique in drug usage process [Not Recovered/Not Resolved]
  - Fatigue [Not Recovered/Not Resolved]
  - Hostility [Not Recovered/Not Resolved]
  - Anger [Not Recovered/Not Resolved]
  - Feeling abnormal [Not Recovered/Not Resolved]
  - Extra dose administered [Recovered/Resolved]
